FAERS Safety Report 7642307-0 (Version None)
Quarter: 2011Q3

REPORT INFORMATION
  Report Type: 
  Country: None (occurrence: None)
  Receive Date: 20110722
  Receipt Date: 20110719
  Transmission Date: 20111222
  Serious: No
  Sender: FDA-Public Use
  Company Number: 201110882

PATIENT
  Sex: Female

DRUGS (2)
  1. LIORESAL [Suspect]
     Indication: MUSCLE SPASTICITY
     Dosage: 87 MCG, DAILY, INTRATHECAL
     Route: 037
  2. CLONIDINE [Concomitant]

REACTIONS (4)
  - CONDITION AGGRAVATED [None]
  - MUSCLE SPASTICITY [None]
  - LOWER LIMB FRACTURE [None]
  - DRUG EFFECT DECREASED [None]
